FAERS Safety Report 25965987 (Version 1)
Quarter: 2025Q4

REPORT INFORMATION
  Report Type: Spontaneous
  Country: US (occurrence: US)
  Receive Date: 20251028
  Receipt Date: 20251028
  Transmission Date: 20260118
  Serious: No
  Sender: SANOFI AVENTIS
  Company Number: US-SA-2025SA319310

PATIENT
  Sex: Female

DRUGS (29)
  1. DUPIXENT [Suspect]
     Active Substance: DUPILUMAB
     Indication: Attention deficit hyperactivity disorder
     Dosage: 300 MG QOW
     Route: 058
  2. ACTOS [Concomitant]
     Active Substance: PIOGLITAZONE HYDROCHLORIDE
  3. ADVAIR HFA [Concomitant]
     Active Substance: FLUTICASONE PROPIONATE\SALMETEROL XINAFOATE
  4. ARNUITY ELLIPTA [Concomitant]
     Active Substance: FLUTICASONE FUROATE
  5. ASPIRIN [Concomitant]
     Active Substance: ASPIRIN
  6. ATORVASTATIN [Concomitant]
     Active Substance: ATORVASTATIN
  7. AZELASTINE [Concomitant]
     Active Substance: AZELASTINE
  8. BIOTIN [Concomitant]
     Active Substance: BIOTIN
  9. BUSPIRONE HCL [Concomitant]
     Active Substance: BUSPIRONE HYDROCHLORIDE
     Dosage: UNK
  10. CALCIUM CITRATE [Concomitant]
     Active Substance: CALCIUM CITRATE
     Dosage: UNK
  11. CARVEDILOL [Concomitant]
     Active Substance: CARVEDILOL
  12. CELEBREX [Concomitant]
     Active Substance: CELECOXIB
     Dosage: UNK
  13. CHLORTHALIDONE [Concomitant]
     Active Substance: CHLORTHALIDONE
  14. CLONAZEPAM [Concomitant]
     Active Substance: CLONAZEPAM
  15. CLONIDINE HYDROCHLORIDE [Concomitant]
     Active Substance: CLONIDINE HYDROCHLORIDE
  16. DEXTROAMPHETAMINE [Concomitant]
     Active Substance: DEXTROAMPHETAMINE
  17. FEXOFENADINE [Concomitant]
     Active Substance: FEXOFENADINE HYDROCHLORIDE
  18. FLUOCINOLONE ACETONIDE [Concomitant]
     Active Substance: FLUOCINOLONE ACETONIDE
     Dosage: UNK
  19. FLUOXETINE [Concomitant]
     Active Substance: FLUOXETINE HYDROCHLORIDE
  20. LEVOTHYROXINE [Concomitant]
     Active Substance: LEVOTHYROXINE
     Dosage: UNK
  21. LISINOPRIL [Concomitant]
     Active Substance: LISINOPRIL
  22. MONTELUKAST [Concomitant]
     Active Substance: MONTELUKAST
     Dosage: UNK
  23. OMEPRAZOLE [Concomitant]
     Active Substance: OMEPRAZOLE
  24. TACROLIMUS [Concomitant]
     Active Substance: TACROLIMUS
  25. TEMAZEPAM [Concomitant]
     Active Substance: TEMAZEPAM
  26. TRAZODONE HCL [Concomitant]
     Active Substance: TRAZODONE HYDROCHLORIDE
  27. VITAMIN B12 [Concomitant]
     Active Substance: CYANOCOBALAMIN
  28. VITAMIN D3 [Concomitant]
     Active Substance: CHOLECALCIFEROL
  29. ZYRTEC [Concomitant]
     Active Substance: CETIRIZINE HYDROCHLORIDE

REACTIONS (1)
  - Product use in unapproved indication [Unknown]
